FAERS Safety Report 4713881-9 (Version None)
Quarter: 2005Q3

REPORT INFORMATION
  Report Type: 
  Country: None (occurrence: None)
  Receive Date: 20050713
  Receipt Date: 20050701
  Transmission Date: 20060218
  Serious: Yes (Hospitalization)
  Sender: FDA-Public Use
  Company Number: S05-USA-03147-01

PATIENT
  Age: 66 Year
  Sex: Female

DRUGS (29)
  1. CELEXA [Suspect]
     Indication: DEPRESSION
     Dosage: 20 MG QD PO
     Route: 048
  2. CELEBREX [Suspect]
     Indication: OSTEOARTHRITIS
     Dates: start: 20000413
  3. CELEBREX [Suspect]
     Indication: SHOULDER PAIN
     Dates: start: 20000413
  4. VIOXX [Suspect]
     Indication: OSTEOARTHRITIS
     Dosage: 25 MG QD PO
     Route: 048
     Dates: start: 20010213
  5. VIOXX [Suspect]
     Indication: SHOULDER PAIN
     Dosage: 25 MG QD PO
     Route: 048
     Dates: start: 20010213
  6. ASPIRIN [Concomitant]
  7. VITAMINS [Concomitant]
  8. CALCIUM GLUCONATE [Concomitant]
  9. NORVASC [Concomitant]
  10. FLEXERIL [Concomitant]
  11. PREDNISONE [Concomitant]
  12. TRAZODONE HCL [Concomitant]
  13. IBUPROFEN [Concomitant]
  14. VITAMIN B-12 [Concomitant]
  15. ACTONEL [Concomitant]
  16. PRILOSEC [Concomitant]
  17. ZANTAC [Concomitant]
  18. VICODIN [Concomitant]
  19. NITROGLYCERIN [Concomitant]
  20. CLARITIN [Concomitant]
  21. ALLEGRA [Concomitant]
  22. FLUCONAZOLE [Concomitant]
  23. NASONEX [Concomitant]
  24. PREMARIN [Concomitant]
  25. NEURONTIN [Concomitant]
  26. DOXYCYCLINE [Concomitant]
  27. FLONASE [Concomitant]
  28. REGLAN [Concomitant]
  29. MIDRIN [Concomitant]

REACTIONS (15)
  - CEREBRAL CYST [None]
  - DEEP VEIN THROMBOSIS [None]
  - DYSPNOEA [None]
  - ERYTHEMA [None]
  - FEELING ABNORMAL [None]
  - HEAD INJURY [None]
  - HEADACHE [None]
  - MEMORY IMPAIRMENT [None]
  - MYOCARDIAL INFARCTION [None]
  - NON-CARDIAC CHEST PAIN [None]
  - OEDEMA PERIPHERAL [None]
  - PALLOR [None]
  - PARAESTHESIA [None]
  - PULMONARY EMBOLISM [None]
  - SCAR [None]
